FAERS Safety Report 25132024 (Version 2)
Quarter: 2025Q2

REPORT INFORMATION
  Report Type: Report from Study
  Country: CA (occurrence: CA)
  Receive Date: 20250327
  Receipt Date: 20250429
  Transmission Date: 20250716
  Serious: Yes (Hospitalization)
  Sender: ABBVIE
  Company Number: CA-ABBVIE-6196515

PATIENT
  Age: 77 Year
  Sex: Male

DRUGS (8)
  1. LUPRON [Suspect]
     Active Substance: LEUPROLIDE ACETATE
     Indication: Prostate cancer
     Dosage: FORM STRENGTH: 30 MILLIGRAM
     Route: 030
     Dates: start: 20240313, end: 20241126
  2. LUPRON [Suspect]
     Active Substance: LEUPROLIDE ACETATE
     Dosage: FORM STRENGTH: 30 MILLIGRAM
     Route: 030
     Dates: start: 20250423
  3. ACETAMINOPHEN [Concomitant]
     Active Substance: ACETAMINOPHEN
     Indication: Product used for unknown indication
  4. CIPROFLOXACIN [Concomitant]
     Active Substance: CIPROFLOXACIN
     Indication: Product used for unknown indication
  5. TAMSULOSIN [Concomitant]
     Active Substance: TAMSULOSIN
     Indication: Product used for unknown indication
  6. BRUKINSA [Concomitant]
     Active Substance: ZANUBRUTINIB
     Indication: Product used for unknown indication
  7. VITAMIN B12 [Concomitant]
     Active Substance: CYANOCOBALAMIN
     Indication: Product used for unknown indication
  8. TYLENOL EXTRA STRENGTH [Concomitant]
     Active Substance: ACETAMINOPHEN
     Indication: Product used for unknown indication

REACTIONS (1)
  - Procedural complication [Unknown]

NARRATIVE: CASE EVENT DATE: 20250320
